FAERS Safety Report 7166460-0 (Version None)
Quarter: 2010Q4

REPORT INFORMATION
  Report Type: 
  Country: None (occurrence: None)
  Receive Date: 20101216
  Receipt Date: 20101213
  Transmission Date: 20110411
  Serious: Yes (Death, Life-Threatening, Hospitalization, Disabling, Other)
  Sender: FDA-Public Use
  Company Number: BE-BRISTOL-MYERS SQUIBB COMPANY-15178957

PATIENT
  Age: 55 Year
  Sex: Male
  Weight: 58 kg

DRUGS (3)
  1. CETUXIMAB [Suspect]
     Indication: HEAD AND NECK CANCER
     Dosage: STRENGTH:5MG/ML 1ST INFUSION:16JUN10,RECENT:23JUN10
     Route: 042
     Dates: start: 20100616, end: 20100623
  2. CISPLATIN [Suspect]
     Indication: HEAD AND NECK CANCER
     Dosage: RECENT INFUSION:16JUN10
     Route: 042
     Dates: start: 20100616, end: 20100616
  3. FLUOROURACIL [Suspect]
     Indication: HEAD AND NECK CANCER
     Dosage: CONTINUOUS INF FROM DAY 1 TO 4 CYCLE RECENT INF:19JUN2010
     Route: 042
     Dates: start: 20100616, end: 20100619

REACTIONS (3)
  - FEBRILE NEUTROPENIA [None]
  - GASTROINTESTINAL HAEMORRHAGE [None]
  - PANCYTOPENIA [None]
